FAERS Safety Report 7923875-8 (Version None)
Quarter: 2011Q4

REPORT INFORMATION
  Report Type: 
  Country: None (occurrence: None)
  Receive Date: 20111117
  Receipt Date: 20110209
  Transmission Date: 20120403
  Serious: No
  Sender: FDA-Public Use
  Company Number: US-AMGEN-USASP2011007811

PATIENT
  Age: 74 Year

DRUGS (2)
  1. ENBREL [Suspect]
     Indication: PRODUCT USED FOR UNKNOWN INDICATION
     Dosage: 50 MG, QWK
  2. PLAVIX [Suspect]
     Dosage: UNK
     Dates: start: 20110202

REACTIONS (1)
  - EPISTAXIS [None]
